FAERS Safety Report 25455799 (Version 1)
Quarter: 2025Q2

REPORT INFORMATION
  Report Type: Spontaneous
  Country: LT (occurrence: LT)
  Receive Date: 20250619
  Receipt Date: 20250619
  Transmission Date: 20250716
  Serious: Yes (Death, Other)
  Sender: AMGEN
  Company Number: LT-AMGEN-LTUSP2025112164

PATIENT
  Age: 14 Year
  Sex: Female

DRUGS (1)
  1. ECULIZUMAB [Suspect]
     Active Substance: ECULIZUMAB
     Indication: Thrombotic microangiopathy
     Route: 065

REACTIONS (10)
  - Death [Fatal]
  - Pleural effusion [Unknown]
  - Pericardial effusion [Unknown]
  - Lung consolidation [Unknown]
  - Cytomegalovirus viraemia [Unknown]
  - Pericardial fibrosis [Unknown]
  - Pneumonitis [Unknown]
  - Lung infiltration [Unknown]
  - Drug effective for unapproved indication [Unknown]
  - Off label use [Unknown]
